FAERS Safety Report 8268615-0 (Version None)
Quarter: 2012Q2

REPORT INFORMATION
  Report Type: 
  Country: None (occurrence: None)
  Receive Date: 20120409
  Receipt Date: 20120326
  Transmission Date: 20120825
  Serious: Yes (Life-Threatening, Hospitalization, Other)
  Sender: FDA-Public Use
  Company Number: GB-TEVA-331032ISR

PATIENT
  Age: 41 Year
  Sex: Female

DRUGS (9)
  1. METFORMIN HCL [Concomitant]
     Dosage: 850 MG, UNK
     Route: 048
  2. LANSOPRAZOLE [Concomitant]
     Dosage: 30 MG, QD
     Route: 048
  3. SIMVASTATIN [Concomitant]
     Dosage: 40 MG, QD
     Route: 048
  4. LITHIUM CARBONATE [Concomitant]
     Dosage: 600 MG, UNK
  5. DIAZEPAM [Suspect]
  6. VENLAFAXINE [Concomitant]
     Dosage: 300 MG, UNK
     Route: 048
  7. VALPROATE SODIUM [Concomitant]
     Route: 048
  8. CLOZARIL [Suspect]
     Indication: INTENTIONAL SELF-INJURY
     Route: 048
     Dates: start: 20060525
  9. PIOGLITAZONE [Concomitant]
     Dosage: 45 MG, QD
     Route: 048

REACTIONS (6)
  - CHRONIC OBSTRUCTIVE PULMONARY DISEASE [None]
  - SOMNOLENCE [None]
  - PNEUMONIA [None]
  - DIABETES MELLITUS [None]
  - CONVULSION [None]
  - RESPIRATORY DEPRESSION [None]
